FAERS Safety Report 12768421 (Version 1)
Quarter: 2016Q3

REPORT INFORMATION
  Report Type: Spontaneous
  Country: US (occurrence: US)
  Receive Date: 20160920
  Receipt Date: 20160920
  Transmission Date: 20161109
  Serious: No
  Sender: FDA-Public Use
  Company Number: None

PATIENT
  Age: 40 Year
  Sex: Female

DRUGS (1)
  1. LISINOPRIL 40 [Suspect]
     Active Substance: LISINOPRIL
     Dosage: 26 AUG 2013 BEGAN WITH 20 MG?14 MAR 2016 INCREASED TO 40MG
     Route: 048
     Dates: start: 20130826

REACTIONS (2)
  - Cough [None]
  - Therapy change [None]

NARRATIVE: CASE EVENT DATE: 20160902
